FAERS Safety Report 10548467 (Version 1)
Quarter: 2014Q4

REPORT INFORMATION
  Report Type: Spontaneous
  Country: US (occurrence: US)
  Receive Date: 20141028
  Receipt Date: 20141028
  Transmission Date: 20150529
  Serious: No
  Sender: FDA-Public Use
  Company Number: US-009507513-1410USA013369

PATIENT
  Age: 33 Year
  Sex: Female

DRUGS (1)
  1. NUVARING [Suspect]
     Active Substance: ETHINYL ESTRADIOL\ETONOGESTREL
     Indication: CONTRACEPTION
     Dosage: FREQUENCY: MONTHLY
     Route: 067
     Dates: start: 201403, end: 201404

REACTIONS (2)
  - Device expulsion [Recovered/Resolved]
  - Medical device discomfort [Recovered/Resolved]

NARRATIVE: CASE EVENT DATE: 2014
